FAERS Safety Report 7837949-3 (Version None)
Quarter: 2011Q4

REPORT INFORMATION
  Report Type: 
  Country: None (occurrence: None)
  Receive Date: 20111024
  Receipt Date: 20110310
  Transmission Date: 20120403
  Serious: No
  Sender: FDA-Public Use
  Company Number: US-ABBOTT-10P-163-0654568-00

PATIENT
  Sex: Female
  Weight: 90.8 kg

DRUGS (7)
  1. MICARDIS [Concomitant]
     Indication: HYPERTENSION
  2. LUPRON DEPOT [Suspect]
     Indication: UTERINE LEIOMYOMA
     Route: 050
     Dates: start: 20100301
  3. VICODIN [Concomitant]
     Indication: PAIN
     Route: 048
  4. PHENTERMINE HCL [Suspect]
     Indication: WEIGHT DECREASED
     Route: 048
     Dates: start: 20100501, end: 20100701
  5. ADVICOR [Concomitant]
     Indication: BLOOD CHOLESTEROL INCREASED
     Dosage: PATIENT WAS SWITCHED TO SIMVASTATIN INSTEAD
  6. LUPRON DEPOT [Suspect]
     Indication: ENDOMETRIOSIS
     Dates: start: 20110105
  7. SIMVASTATIN [Concomitant]
     Indication: BLOOD CHOLESTEROL INCREASED

REACTIONS (7)
  - HOT FLUSH [None]
  - DECREASED APPETITE [None]
  - PARAESTHESIA [None]
  - OEDEMA PERIPHERAL [None]
  - HYPOAESTHESIA [None]
  - SKIN TIGHTNESS [None]
  - HEADACHE [None]
